FAERS Safety Report 22267308 (Version 1)
Quarter: 2023Q2

REPORT INFORMATION
  Report Type: Spontaneous
  Country: GB (occurrence: None)
  Receive Date: 20230428
  Receipt Date: 20230428
  Transmission Date: 20230722
  Serious: Yes (Other)
  Sender: FDA-Public Use
  Company Number: 2023A098778

PATIENT
  Sex: Female

DRUGS (166)
  1. ASTRAZENECA COVID-19 VACCINE [Suspect]
     Active Substance: AZD-1222
     Indication: COVID-19 immunisation
     Dosage: 0.5 ML0.5ML UNKNOWN
     Dates: start: 20210204
  2. ASTRAZENECA COVID-19 VACCINE [Suspect]
     Active Substance: AZD-1222
     Dates: start: 20210415
  3. ASTRAZENECA COVID-19 VACCINE [Suspect]
     Active Substance: AZD-1222
     Dosage: DOSE 2
     Dates: start: 20210521
  4. ASTRAZENECA COVID-19 VACCINE [Suspect]
     Active Substance: AZD-1222
     Dosage: DOSE 2
     Dates: start: 20210319
  5. ASTRAZENECA COVID-19 VACCINE [Suspect]
     Active Substance: AZD-1222
     Dosage: DOSE 2
     Dates: start: 20210713
  6. ASTRAZENECA COVID-19 VACCINE [Suspect]
     Active Substance: AZD-1222
     Dosage: DOSE 2
     Dates: start: 20210508
  7. ASTRAZENECA COVID-19 VACCINE [Suspect]
     Active Substance: AZD-1222
     Dosage: DOSE 1
     Dates: start: 20210215
  8. ASTRAZENECA COVID-19 VACCINE [Suspect]
     Active Substance: AZD-1222
     Dosage: DOSE 1
  9. ASTRAZENECA COVID-19 VACCINE [Suspect]
     Active Substance: AZD-1222
     Dosage: DOSE 1
     Dates: start: 20210413
  10. ASTRAZENECA COVID-19 VACCINE [Suspect]
     Active Substance: AZD-1222
     Dosage: DOSE 1
     Dates: start: 20210130
  11. ASTRAZENECA COVID-19 VACCINE [Suspect]
     Active Substance: AZD-1222
     Dosage: DOSE 1
     Dates: start: 20210418
  12. ASTRAZENECA COVID-19 VACCINE [Suspect]
     Active Substance: AZD-1222
     Indication: COVID-19 immunisation
     Dosage: DOSE 10.5ML UNKNOWN
     Dates: start: 20210416
  13. ASTRAZENECA COVID-19 VACCINE [Suspect]
     Active Substance: AZD-1222
     Dosage: DOSE 1 UNKNOWN
     Dates: start: 2019
  14. DAPAGLIFLOZIN [Suspect]
     Active Substance: DAPAGLIFLOZIN
     Indication: Ill-defined disorder
     Dosage: 10 ONCE DAILY MORNING
     Dates: start: 20230310, end: 20230331
  15. DAPAGLIFLOZIN [Suspect]
     Active Substance: DAPAGLIFLOZIN
     Indication: Cardiac failure chronic
     Dosage: 10 ONCE DAILY MORNING
     Dates: start: 20230310, end: 20230331
  16. CANDESARTAN [Suspect]
     Active Substance: CANDESARTAN
     Dosage: 245
     Dates: start: 20230412
  17. CANDESARTAN [Suspect]
     Active Substance: CANDESARTAN
     Dates: start: 20170209
  18. BUDESONIDE [Suspect]
     Active Substance: BUDESONIDE
     Indication: Product used for unknown indication
     Dosage: 1 DOSAGE FORM, QD
     Route: 048
     Dates: start: 200707
  19. BUDESONIDE [Suspect]
     Active Substance: BUDESONIDE
     Indication: Colitis ulcerative
     Dosage: 1 DOSAGE FORM, QD
     Route: 048
     Dates: start: 200707
  20. BUDESONIDE [Suspect]
     Active Substance: BUDESONIDE
     Indication: Product used for unknown indication
     Dosage: 8 DOSAGE FORM, Q8WK
     Route: 048
     Dates: start: 200707
  21. BUDESONIDE [Suspect]
     Active Substance: BUDESONIDE
     Indication: Colitis ulcerative
     Dosage: 8 DOSAGE FORM, Q8WK
     Route: 048
     Dates: start: 200707
  22. OMEPRAZOLE [Suspect]
     Active Substance: OMEPRAZOLE
  23. ROSUVASTATIN [Suspect]
     Active Substance: ROSUVASTATIN
     Indication: Ill-defined disorder
  24. ROSUVASTATIN [Suspect]
     Active Substance: ROSUVASTATIN
     Indication: Ill-defined disorder
     Dates: start: 20230403
  25. ESOMEPRAZOLE [Suspect]
     Active Substance: ESOMEPRAZOLE
     Dates: end: 20230305
  26. FELODIPINE [Suspect]
     Active Substance: FELODIPINE
     Indication: Hypertension
     Dates: start: 20220403, end: 20230403
  27. ASACOL [Suspect]
     Active Substance: MESALAMINE
     Indication: Colitis ulcerative
     Dosage: 4.8 GRAM, QD
     Dates: start: 20161001
  28. ASACOL [Suspect]
     Active Substance: MESALAMINE
     Indication: Product used for unknown indication
     Dosage: 4.8 GRAM, QD
     Dates: start: 20161001
  29. ASACOL [Suspect]
     Active Substance: MESALAMINE
     Indication: Colitis ulcerative
     Dosage: 4.8 GRAM, QD
     Dates: start: 20161001
  30. ASACOL [Suspect]
     Active Substance: MESALAMINE
     Indication: Colitis ulcerative
     Dosage: 3 DOSAGE FORM, Q12H
     Dates: start: 20161001
  31. ASACOL [Suspect]
     Active Substance: MESALAMINE
     Indication: Product used for unknown indication
     Dosage: 3 DOSAGE FORM, Q12H
     Dates: start: 20161001
  32. ASACOL [Suspect]
     Active Substance: MESALAMINE
     Indication: Colitis ulcerative
     Dosage: 3 DOSAGE FORM, Q12H
     Dates: start: 20161001
  33. ASACOL [Suspect]
     Active Substance: MESALAMINE
     Indication: Colitis ulcerative
     Dosage: 2.4 GRAM, QD
     Dates: start: 20161001
  34. ASACOL [Suspect]
     Active Substance: MESALAMINE
     Indication: Product used for unknown indication
     Dosage: 2.4 GRAM, QD
     Dates: start: 20161001
  35. ASACOL [Suspect]
     Active Substance: MESALAMINE
     Indication: Colitis ulcerative
     Dosage: 2.4 GRAM, QD
     Dates: start: 20161001
  36. ASACOL [Suspect]
     Active Substance: MESALAMINE
     Indication: Colitis ulcerative
     Dosage: 6 DOSAGE FORM, QD
     Dates: start: 20161001
  37. ASACOL [Suspect]
     Active Substance: MESALAMINE
     Indication: Product used for unknown indication
     Dosage: 6 DOSAGE FORM, QD
     Dates: start: 20161001
  38. ASACOL [Suspect]
     Active Substance: MESALAMINE
     Indication: Colitis ulcerative
     Dosage: 6 DOSAGE FORM, QD
     Dates: start: 20161001
  39. CORTIFOAM [Suspect]
     Active Substance: HYDROCORTISONE ACETATE
     Indication: Colitis ulcerative
     Dosage: 8 DOSAGE FORM, Q8WK
     Route: 048
     Dates: start: 201707
  40. CORTIFOAM [Suspect]
     Active Substance: HYDROCORTISONE ACETATE
     Indication: Product used for unknown indication
     Dosage: 8 DOSAGE FORM, Q8WK
     Route: 048
     Dates: start: 201707
  41. CORTIFOAM [Suspect]
     Active Substance: HYDROCORTISONE ACETATE
     Indication: Colitis ulcerative
     Dosage: 1 DOSAGE FORM, QD
     Route: 048
     Dates: start: 201707
  42. CORTIFOAM [Suspect]
     Active Substance: HYDROCORTISONE ACETATE
     Indication: Product used for unknown indication
     Dosage: 1 DOSAGE FORM, QD
     Route: 048
     Dates: start: 201707
  43. CORTIFOAM [Suspect]
     Active Substance: HYDROCORTISONE ACETATE
     Indication: Colitis ulcerative
     Dosage: 8 DOSAGE FORM, Q8WK
     Route: 048
     Dates: start: 200707
  44. CORTIFOAM [Suspect]
     Active Substance: HYDROCORTISONE ACETATE
     Indication: Product used for unknown indication
     Dosage: 8 DOSAGE FORM, Q8WK
     Route: 048
     Dates: start: 200707
  45. ENTYVIO [Suspect]
     Active Substance: VEDOLIZUMAB
     Indication: Colitis ulcerative
     Dosage: UNK(DOSE FORM:200)
     Route: 042
  46. ENTYVIO [Suspect]
     Active Substance: VEDOLIZUMAB
     Indication: Product used for unknown indication
     Dosage: UNK(DOSE FORM:200)
     Route: 042
  47. ENTYVIO [Suspect]
     Active Substance: VEDOLIZUMAB
     Indication: Colitis ulcerative
     Dosage: 200 UNK
     Route: 048
     Dates: start: 2017, end: 2017
  48. ENTYVIO [Suspect]
     Active Substance: VEDOLIZUMAB
     Indication: Product used for unknown indication
     Dosage: 200 UNK
     Route: 048
     Dates: start: 2017, end: 2017
  49. HYDROCORTISONE [Suspect]
     Active Substance: HYDROCORTISONE
     Indication: Colitis ulcerative
     Dosage: 8 DOSAGE FORM, Q8WK
     Route: 048
     Dates: start: 201807
  50. HYDROCORTISONE [Suspect]
     Active Substance: HYDROCORTISONE
     Indication: Colitis ulcerative
     Dosage: 1 DOSAGE FORM, QD
     Route: 048
     Dates: start: 201807
  51. MESALAMINE [Suspect]
     Active Substance: MESALAMINE
     Indication: Colitis ulcerative
     Dosage: 4.8 GRAM, QD
     Route: 048
     Dates: start: 20161001
  52. MESALAMINE [Suspect]
     Active Substance: MESALAMINE
     Indication: Product used for unknown indication
     Dosage: 4.8 GRAM, QD
     Route: 048
     Dates: start: 20161001
  53. MESALAMINE [Suspect]
     Active Substance: MESALAMINE
     Indication: Colitis ulcerative
     Dosage: 3 DOSAGE FORM, BID
     Route: 048
     Dates: start: 201610
  54. MESALAMINE [Suspect]
     Active Substance: MESALAMINE
     Indication: Product used for unknown indication
     Dosage: 3 DOSAGE FORM, BID
     Route: 048
     Dates: start: 201610
  55. MESALAMINE [Suspect]
     Active Substance: MESALAMINE
     Indication: Colitis ulcerative
     Dosage: 2.4 GRAM, QD
     Route: 048
     Dates: start: 20161001
  56. MESALAMINE [Suspect]
     Active Substance: MESALAMINE
     Indication: Product used for unknown indication
     Dosage: 2.4 GRAM, QD
     Route: 048
     Dates: start: 20161001
  57. MESALAMINE [Suspect]
     Active Substance: MESALAMINE
     Indication: Colitis ulcerative
     Dosage: 6 DOSAGE FORM, QD
     Route: 048
     Dates: start: 20161001
  58. MESALAMINE [Suspect]
     Active Substance: MESALAMINE
     Indication: Product used for unknown indication
     Dosage: 6 DOSAGE FORM, QD
     Route: 048
     Dates: start: 20161001
  59. MESALAMINE [Suspect]
     Active Substance: MESALAMINE
     Indication: Colitis ulcerative
     Dosage: 50 MILLIGRAM50.0MG UNKNOWN
     Route: 048
     Dates: start: 20160101, end: 20161001
  60. MESALAMINE [Suspect]
     Active Substance: MESALAMINE
     Indication: Product used for unknown indication
     Dosage: 50 MILLIGRAM50.0MG UNKNOWN
     Route: 048
     Dates: start: 20160101, end: 20161001
  61. MESALAMINE [Suspect]
     Active Substance: MESALAMINE
     Indication: Colitis ulcerative
     Dosage: UNKNOWN
     Route: 048
     Dates: start: 2017, end: 201709
  62. MESALAMINE [Suspect]
     Active Substance: MESALAMINE
     Indication: Product used for unknown indication
     Dosage: UNKNOWN
     Route: 048
     Dates: start: 2017, end: 201709
  63. MESALAMINE [Suspect]
     Active Substance: MESALAMINE
     Indication: Colitis ulcerative
     Dosage: 50 MILLIGRAM50.0MG UNKNOWN
     Route: 048
     Dates: start: 20170101, end: 20170901
  64. MESALAMINE [Suspect]
     Active Substance: MESALAMINE
     Indication: Product used for unknown indication
     Dosage: 50 MILLIGRAM50.0MG UNKNOWN
     Route: 048
     Dates: start: 20170101, end: 20170901
  65. MESALAMINE [Suspect]
     Active Substance: MESALAMINE
     Indication: Colitis ulcerative
     Dosage: UNKNOWN
     Route: 048
  66. MESALAMINE [Suspect]
     Active Substance: MESALAMINE
     Indication: Product used for unknown indication
     Dosage: UNKNOWN
     Route: 048
  67. MESALAMINE [Suspect]
     Active Substance: MESALAMINE
     Indication: Colitis ulcerative
     Dosage: UNKNOWN
     Route: 048
     Dates: start: 20160101, end: 20161001
  68. MESALAMINE [Suspect]
     Active Substance: MESALAMINE
     Indication: Product used for unknown indication
     Dosage: UNKNOWN
     Route: 048
     Dates: start: 20160101, end: 20161001
  69. MESALAMINE [Suspect]
     Active Substance: MESALAMINE
     Indication: Colitis ulcerative
     Route: 048
     Dates: start: 20160101, end: 20161001
  70. MESALAMINE [Suspect]
     Active Substance: MESALAMINE
     Indication: Colitis ulcerative
     Dosage: 2.4G UNKNOWN
     Route: 048
     Dates: start: 201601, end: 201610
  71. VEDOLIZUMAB [Suspect]
     Active Substance: VEDOLIZUMAB
     Indication: Colitis ulcerative
     Dosage: 1 DOSAGE FORM, QD
     Route: 048
     Dates: start: 2017, end: 2017
  72. VEDOLIZUMAB [Suspect]
     Active Substance: VEDOLIZUMAB
     Indication: Deep vein thrombosis
     Dosage: 1 DOSAGE FORM, QD
     Route: 048
     Dates: start: 2017, end: 2017
  73. WARFARIN [Suspect]
     Active Substance: WARFARIN
     Indication: Deep vein thrombosis
     Dates: start: 2009
  74. WARFARIN SODIUM [Suspect]
     Active Substance: WARFARIN SODIUM
     Indication: Deep vein thrombosis
     Dosage: 8 DOSAGE FORM, Q8WK
     Dates: start: 201707
  75. WARFARIN SODIUM [Suspect]
     Active Substance: WARFARIN SODIUM
     Indication: Colitis ulcerative
     Dosage: 8 DOSAGE FORM, Q8WK
     Dates: start: 201707
  76. WARFARIN SODIUM [Suspect]
     Active Substance: WARFARIN SODIUM
     Indication: Deep vein thrombosis
     Dates: start: 2019
  77. WARFARIN SODIUM [Suspect]
     Active Substance: WARFARIN SODIUM
     Indication: Colitis ulcerative
     Dates: start: 2019
  78. ADALIMUMAB [Suspect]
     Active Substance: ADALIMUMAB
     Indication: Crohn^s disease
     Dosage: UNK
     Route: 048
     Dates: start: 201707
  79. INFLIXIMAB [Suspect]
     Active Substance: INFLIXIMAB
     Indication: Crohn^s disease
     Dosage: 5 MILLIGRAM/KILOGRAM, Q8WK
     Route: 042
     Dates: start: 20170101, end: 20170901
  80. INFLIXIMAB [Suspect]
     Active Substance: INFLIXIMAB
     Indication: Product used for unknown indication
     Dosage: 5 MILLIGRAM/KILOGRAM, Q8WK
     Route: 042
     Dates: start: 20170101, end: 20170901
  81. INFLIXIMAB [Suspect]
     Active Substance: INFLIXIMAB
     Indication: Colitis ulcerative
     Dosage: 5 MILLIGRAM/KILOGRAM, Q8WK
     Route: 042
     Dates: start: 20170101, end: 20170901
  82. INFLIXIMAB [Suspect]
     Active Substance: INFLIXIMAB
     Indication: Crohn^s disease
     Route: 042
     Dates: start: 201709
  83. INFLIXIMAB [Suspect]
     Active Substance: INFLIXIMAB
     Indication: Product used for unknown indication
     Route: 042
     Dates: start: 201709
  84. INFLIXIMAB [Suspect]
     Active Substance: INFLIXIMAB
     Indication: Colitis ulcerative
     Route: 042
     Dates: start: 201709
  85. INFLIXIMAB [Suspect]
     Active Substance: INFLIXIMAB
     Indication: Crohn^s disease
     Dosage: 5 MILLIGRAM/KILOGRAM, Q8WK
     Route: 042
     Dates: start: 20171019
  86. INFLIXIMAB [Suspect]
     Active Substance: INFLIXIMAB
     Indication: Product used for unknown indication
     Dosage: 5 MILLIGRAM/KILOGRAM, Q8WK
     Route: 042
     Dates: start: 20171019
  87. INFLIXIMAB [Suspect]
     Active Substance: INFLIXIMAB
     Indication: Colitis ulcerative
     Dosage: 5 MILLIGRAM/KILOGRAM, Q8WK
     Route: 042
     Dates: start: 20171019
  88. INFLIXIMAB [Suspect]
     Active Substance: INFLIXIMAB
     Indication: Crohn^s disease
     Route: 042
     Dates: start: 20170101, end: 20170901
  89. INFLIXIMAB [Suspect]
     Active Substance: INFLIXIMAB
     Indication: Product used for unknown indication
     Route: 042
     Dates: start: 20170101, end: 20170901
  90. INFLIXIMAB [Suspect]
     Active Substance: INFLIXIMAB
     Indication: Colitis ulcerative
     Route: 042
     Dates: start: 20170101, end: 20170901
  91. PREDNISONE [Suspect]
     Active Substance: PREDNISONE
     Indication: Colitis ulcerative
     Dosage: 50.0MG UNKNOWN
     Dates: start: 2009, end: 2009
  92. PREDNISONE [Suspect]
     Active Substance: PREDNISONE
     Indication: Colitis ulcerative
     Dosage: UNKNOWN
     Dates: start: 2017
  93. SULFASALAZINE [Suspect]
     Active Substance: SULFASALAZINE
     Indication: Product used for unknown indication
     Dates: start: 2009, end: 2016
  94. SULFASALAZINE [Suspect]
     Active Substance: SULFASALAZINE
     Indication: Colitis ulcerative
     Dates: start: 2009, end: 2016
  95. SULFASALAZINE [Suspect]
     Active Substance: SULFASALAZINE
     Indication: Product used for unknown indication
     Dates: start: 20160101, end: 20160101
  96. SULFASALAZINE [Suspect]
     Active Substance: SULFASALAZINE
     Indication: Colitis ulcerative
     Dates: start: 20160101, end: 20160101
  97. SULFASALAZINE [Suspect]
     Active Substance: SULFASALAZINE
     Indication: Product used for unknown indication
     Dates: start: 20090101, end: 20160101
  98. SULFASALAZINE [Suspect]
     Active Substance: SULFASALAZINE
     Indication: Colitis ulcerative
     Dates: start: 20090101, end: 20160101
  99. SULFASALAZINE [Suspect]
     Active Substance: SULFASALAZINE
     Indication: Product used for unknown indication
     Dates: start: 201709, end: 201709
  100. SULFASALAZINE [Suspect]
     Active Substance: SULFASALAZINE
     Indication: Colitis ulcerative
     Dates: start: 201709, end: 201709
  101. ALBENDAZOLE [Suspect]
     Active Substance: ALBENDAZOLE
     Indication: Colitis ulcerative
     Dates: start: 2017, end: 2017
  102. HUMIRA [Suspect]
     Active Substance: ADALIMUMAB
     Indication: Crohn^s disease
     Dosage: 8.0DF UNKNOWN
     Route: 048
     Dates: start: 201707
  103. HUMIRA [Suspect]
     Active Substance: ADALIMUMAB
     Indication: Deep vein thrombosis
     Dosage: 8.0DF UNKNOWN
     Route: 048
     Dates: start: 201707
  104. HUMIRA [Suspect]
     Active Substance: ADALIMUMAB
     Indication: Crohn^s disease
     Dosage: 8.0DF UNKNOWN
  105. HUMIRA [Suspect]
     Active Substance: ADALIMUMAB
     Indication: Deep vein thrombosis
     Dosage: 8.0DF UNKNOWN
  106. METHOTREXATE [Concomitant]
     Active Substance: METHOTREXATE
     Indication: Colitis ulcerative
     Dates: start: 201709, end: 201709
  107. METHOTREXATE [Concomitant]
     Active Substance: METHOTREXATE
     Indication: Colitis ulcerative
     Dates: start: 20090101, end: 20160101
  108. XELJANZ [Concomitant]
     Active Substance: TOFACITINIB CITRATE
     Indication: Colitis ulcerative
  109. XELJANZ [Concomitant]
     Active Substance: TOFACITINIB CITRATE
     Indication: Colitis ulcerative
     Dates: start: 20090101, end: 20160101
  110. EPINEPHRINE [Suspect]
     Active Substance: EPINEPHRINE
  111. ASPIRIN [Suspect]
     Active Substance: ASPIRIN
     Dosage: MORNING
  112. MEBEVERINE [Suspect]
     Active Substance: MEBEVERINE
  113. ESCITALOPRAM [Suspect]
     Active Substance: ESCITALOPRAM OXALATE
  114. FUROSEMIDE [Suspect]
     Active Substance: FUROSEMIDE
  115. GABAPENTIN [Suspect]
     Active Substance: GABAPENTIN
  116. LEVOTHYROXINE [Suspect]
     Active Substance: LEVOTHYROXINE
  117. CHOLECALCIFEROL [Suspect]
     Active Substance: CHOLECALCIFEROL
  118. METFORMIN [Suspect]
     Active Substance: METFORMIN HYDROCHLORIDE
  119. OXYCODONE [Suspect]
     Active Substance: OXYCODONE
  120. ACETAMINOPHEN [Suspect]
     Active Substance: ACETAMINOPHEN
  121. CALCIUM CARBONATE\CHOLECALCIFEROL [Concomitant]
     Active Substance: CALCIUM CARBONATE\CHOLECALCIFEROL
  122. GAVISCON [Concomitant]
     Active Substance: ALUMINUM HYDROXIDE\MAGNESIUM CARBONATE
  123. RENNIE [Concomitant]
  124. ASPIRIN [Concomitant]
     Active Substance: ASPIRIN
     Indication: Ill-defined disorder
     Dosage: ONE TO BE TAKEN IN THE MORNING
     Dates: start: 20230117
  125. BISOPROLOL [Concomitant]
     Active Substance: BISOPROLOL
     Indication: Ill-defined disorder
     Dosage: TAKE ONE DAILY
     Dates: start: 20230127
  126. BISOPROLOL [Concomitant]
     Active Substance: BISOPROLOL
     Indication: Dyscalculia
     Dosage: TAKE ONE DAILY
     Dates: start: 20230127
  127. CITALOPRAM [Concomitant]
     Active Substance: CITALOPRAM HYDROBROMIDE
     Indication: Ill-defined disorder
     Dosage: ONE TO BE TAKEN DAILY
     Dates: start: 20230117
  128. DAPAGLIFLOZIN [Concomitant]
     Active Substance: DAPAGLIFLOZIN
     Indication: Ill-defined disorder
     Dosage: TAKE ONE DAILY
     Dates: start: 20230316, end: 20230325
  129. LANSOPRAZOLE [Concomitant]
     Active Substance: LANSOPRAZOLE
     Indication: Ill-defined disorder
     Dosage: ONE TABLET IN THE MORNING TO PROTECT THE STOMAC
     Dates: start: 20230117
  130. LYRICA [Concomitant]
     Active Substance: PREGABALIN
     Indication: Ill-defined disorder
     Dosage: PREGABALIN ONE TO BE TAKEN TWICE A DAY
     Dates: start: 20230117
  131. ACETAMINOPHEN [Concomitant]
     Active Substance: ACETAMINOPHEN
     Indication: Ill-defined disorder
     Dosage: TAKE ONE OR TWO TABLETS EVERY 4 TO 6 HOURS WHEN
     Dates: start: 20230117
  132. ACETAMINOPHEN [Concomitant]
     Active Substance: ACETAMINOPHEN
     Indication: Ill-defined disorder
     Dosage: TAKE 2 4 TIMES/DAY
     Dates: start: 20230412
  133. ACETAMINOPHEN [Concomitant]
     Active Substance: ACETAMINOPHEN
     Indication: Ill-defined disorder
     Dosage: TAKE 2 4 TIMES/DAY
     Dates: start: 20230412
  134. RAMIPRIL [Concomitant]
     Active Substance: RAMIPRIL
     Indication: Ill-defined disorder
     Dosage: TAKE ONE DAILY
     Dates: start: 20230126
  135. RAMIPRIL [Concomitant]
     Active Substance: RAMIPRIL
     Indication: Ill-defined disorder
     Dosage: TAKE ONE DAILY
     Dates: start: 20221220
  136. RAMIPRIL [Concomitant]
     Active Substance: RAMIPRIL
     Indication: Ill-defined disorder
     Dosage: TAKE ONE DAILY
     Dates: start: 20221220
  137. TAMSULOSIN HYDROCHLORIDE [Concomitant]
     Active Substance: TAMSULOSIN HYDROCHLORIDE
     Indication: Ill-defined disorder
     Dosage: TAKE ONE DAILY
     Dates: start: 20230117
  138. COMIRNATY [Suspect]
     Active Substance: TOZINAMERAN
     Dosage: DOSE 3
     Dates: start: 20220322
  139. AMLODIPINE [Concomitant]
     Active Substance: AMLODIPINE BESYLATE
     Indication: Ill-defined disorder
     Dosage: TAKE ONE DAILY
     Dates: start: 20220805, end: 20230220
  140. AMLODIPINE [Concomitant]
     Active Substance: AMLODIPINE BESYLATE
     Indication: Ill-defined disorder
     Dosage: TAKE ONE DAILY
     Dates: start: 20220805, end: 20230220
  141. ATORVASTATIN [Concomitant]
     Active Substance: ATORVASTATIN
     Indication: Ill-defined disorder
  142. ATORVASTATIN [Concomitant]
     Active Substance: ATORVASTATIN
     Indication: Ill-defined disorder
     Dosage: ONE TO BE TAKEN AT NIGHT
     Dates: start: 20220628
  143. DORZOLAMIDE [Concomitant]
     Active Substance: DORZOLAMIDE
     Dosage: ONE DROP TWICE DAILY IN THE RIGHT EYE ONLY
     Dates: start: 20220628
  144. FESOTERODINE FUMARATE [Concomitant]
     Active Substance: FESOTERODINE FUMARATE
     Indication: Ill-defined disorder
     Dosage: TAKE TWO DAILY
     Dates: start: 20220628
  145. FOLIC ACID [Concomitant]
     Active Substance: FOLIC ACID
     Indication: Ill-defined disorder
     Dosage: TAKE ONE DAILY FOR 4 MONTHS ONLY
     Dates: start: 20230220
  146. LATANOPROST [Concomitant]
     Active Substance: LATANOPROST
     Indication: Ill-defined disorder
     Dosage: ONE DROP ONCE DAILY IN BOTH EYES
     Dates: start: 20230412
  147. POLYETHYLENE GLYCOL 3350\POTASSIUM CHLORIDE\SODIUM BICARBONATE\SODIUM [Concomitant]
     Active Substance: POLYETHYLENE GLYCOL 3350\POTASSIUM CHLORIDE\SODIUM BICARBONATE\SODIUM CHLORIDE
     Indication: Ill-defined disorder
     Dosage: ONE DROP ONCE DAILY IN BOTH EYES
     Dates: start: 20220628, end: 20230413
  148. MOVICOL [Concomitant]
     Active Substance: POLYETHYLENE GLYCOL 3350\POTASSIUM CHLORIDE\SODIUM BICARBONATE\SODIUM CHLORIDE
     Indication: Ill-defined disorder
     Dosage: TWO SACHET BD
     Dates: start: 20220628, end: 20230320
  149. NITROFURANTOIN [Concomitant]
     Active Substance: NITROFURANTOIN
     Indication: Ill-defined disorder
     Dosage: TAKE ONE CAPSULE, TWICE DAILY
     Dates: start: 20230413
  150. RIVAROXABAN [Concomitant]
     Active Substance: RIVAROXABAN
     Dosage: TAKE ONE DAILY
     Dates: start: 20220628
  151. PARAFFIN [Concomitant]
     Active Substance: PARAFFIN
     Indication: Ill-defined disorder
     Dosage: APPLY THREE TIMES A DAY AS REQUIRED TO DRY SKIN
     Dates: start: 20230412
  152. BETNOVATE [Concomitant]
     Active Substance: BETAMETHASONE
     Indication: Ill-defined disorder
     Dosage: APPLY TO THE AFFECTED AREA(S) ONCE OR TWICE A DAY
     Dates: start: 20221220
  153. LATANOPROST [Concomitant]
     Active Substance: LATANOPROST
     Indication: Ill-defined disorder
     Dosage: ONE DROP ONCE DAILY AT NIGHT
     Dates: start: 20221220
  154. LATANOPROST [Concomitant]
     Active Substance: LATANOPROST
     Indication: Ill-defined disorder
     Dosage: APPLY ONE DROP ONCE DAILY TO BOTH EYES
     Dates: start: 20220628, end: 20230413
  155. EMPAGLIFLOZIN [Concomitant]
     Active Substance: EMPAGLIFLOZIN
     Indication: Ill-defined disorder
     Dosage: ONE DROP ONCE DAILY AT NIGHT
     Dates: start: 20221230, end: 20230403
  156. ROSUVASTATIN [Concomitant]
     Active Substance: ROSUVASTATIN
     Indication: Ill-defined disorder
     Dosage: TAKE ONE TABLET EACH DAY TO HELP LOWER CHOLESTEROL
     Dates: start: 20221230, end: 20230403
  157. ROSUVASTATIN [Concomitant]
     Active Substance: ROSUVASTATIN
     Indication: Blood cholesterol increased
     Dosage: TAKE ONE TABLET EACH DAY TO HELP LOWER CHOLESTEROL
     Dates: start: 20221230, end: 20230403
  158. ROSUVASTATIN [Concomitant]
     Active Substance: ROSUVASTATIN
     Indication: Ill-defined disorder
     Dosage: 5MG ONCE AT NIGHT;
     Dates: start: 20230303, end: 20230306
  159. ROSUVASTATIN [Concomitant]
     Active Substance: ROSUVASTATIN
     Indication: Blood cholesterol increased
     Dosage: 5MG ONCE AT NIGHT;
     Dates: start: 20230303, end: 20230306
  160. OMEPRAZOLE [Concomitant]
     Active Substance: OMEPRAZOLE
     Indication: Ill-defined disorder
     Dates: start: 20221230
  161. PRAVASTATIN [Concomitant]
     Active Substance: PRAVASTATIN
     Indication: Ill-defined disorder
     Dosage: TAKE ONE AT NIGHT;
     Dates: start: 20221220
  162. DORZOLAMIDE [Concomitant]
     Active Substance: DORZOLAMIDE
     Indication: Ill-defined disorder
     Dosage: TAKE ONE AT NIGHT;
     Dates: start: 20221220
  163. CLOBETASONE BUTYRATE [Concomitant]
     Active Substance: CLOBETASONE BUTYRATE
     Indication: Ill-defined disorder
     Dosage: USE TWICE DAILY TO FLARES OF ECZEMA FOR UP TO 7...;
     Dates: start: 20230308
  164. DORZOLAMIDE [Concomitant]
     Active Substance: DORZOLAMIDE
     Indication: Ill-defined disorder
     Dosage: ONE DROP TWICE DAILY IN THE RIGHT EYE ONLY
  165. UNSPECIFIED INGREDIENT [Concomitant]
     Active Substance: UNSPECIFIED INGREDIENT
     Indication: Ill-defined disorder
     Dosage: USE AS DIRECTED BY OPTHALMOLOGY
     Dates: start: 20220628, end: 20230413
  166. RIVAROXABAN [Concomitant]
     Active Substance: RIVAROXABAN
     Indication: Ill-defined disorder
     Dosage: TAKE ONE DAILY
     Dates: start: 20220628

REACTIONS (54)
  - Rhinitis [Not Recovered/Not Resolved]
  - Catarrh [Not Recovered/Not Resolved]
  - Frequent bowel movements [Unknown]
  - Deep vein thrombosis [Unknown]
  - Impaired quality of life [Unknown]
  - Condition aggravated [Unknown]
  - Inappropriate schedule of product administration [Not Recovered/Not Resolved]
  - Weight decreased [Unknown]
  - Rectal haemorrhage [Unknown]
  - Stress [Not Recovered/Not Resolved]
  - Colitis ulcerative [Unknown]
  - Product use in unapproved indication [Unknown]
  - Drug ineffective [Unknown]
  - Intentional product use issue [Not Recovered/Not Resolved]
  - Impaired work ability [Unknown]
  - Medication error [Unknown]
  - Off label use [Unknown]
  - Loss of personal independence in daily activities [Unknown]
  - Loss of personal independence in daily activities [Unknown]
  - Steroid dependence [Unknown]
  - Bronchiectasis [Unknown]
  - Haematochezia [Unknown]
  - Colitis ulcerative [Unknown]
  - Accidental overdose [Recovered/Resolved]
  - Confusional state [Unknown]
  - Somnolence [Unknown]
  - Gingival pain [Recovered/Resolved with Sequelae]
  - Tubulointerstitial nephritis [Recovering/Resolving]
  - Adverse drug reaction [Unknown]
  - COVID-19 [Recovered/Resolved with Sequelae]
  - Burns second degree [Recovered/Resolved]
  - Arthritis [Not Recovered/Not Resolved]
  - Pulmonary embolism [Recovered/Resolved with Sequelae]
  - Rash [Unknown]
  - Eczema [Recovered/Resolved]
  - Swollen tongue [Recovered/Resolved]
  - Nightmare [Recovered/Resolved]
  - Systemic lupus erythematosus [Recovered/Resolved with Sequelae]
  - Hypopnoea [Recovered/Resolved with Sequelae]
  - Migraine [Recovering/Resolving]
  - Vertigo [Recovering/Resolving]
  - Tinnitus [Not Recovered/Not Resolved]
  - Cardiac murmur [Recovering/Resolving]
  - Pain in extremity [Recovered/Resolved]
  - Abdominal discomfort [Not Recovered/Not Resolved]
  - Cerebrovascular accident [Recovered/Resolved with Sequelae]
  - Depression [Recovered/Resolved]
  - Dysgeusia [Not Recovered/Not Resolved]
  - Fatigue [Unknown]
  - Pyrexia [Unknown]
  - Rash [Not Recovered/Not Resolved]
  - Pain [Recovered/Resolved]
  - Headache [Recovered/Resolved]
  - Palpitations [Not Recovered/Not Resolved]

NARRATIVE: CASE EVENT DATE: 20080101
